FAERS Safety Report 9341599 (Version 3)
Quarter: 2013Q3

REPORT INFORMATION
  Report Type: Spontaneous
  Country: IT (occurrence: IT)
  Receive Date: 20130611
  Receipt Date: 20130808
  Transmission Date: 20140515
  Serious: Yes (Disabling)
  Sender: FDA-Public Use
  Company Number: PHHY2013IT058745

PATIENT
  Sex: Female

DRUGS (2)
  1. ZOMETA [Suspect]
     Indication: METASTASES TO BONE
     Dosage: 4 MG, CYCLIC
     Route: 042
     Dates: start: 20130329, end: 20130531
  2. VELCADE [Concomitant]
     Dosage: 3.5 MG, UNK
     Route: 058

REACTIONS (4)
  - Osteonecrosis of jaw [Not Recovered/Not Resolved]
  - Metastases to bone [Unknown]
  - Malignant neoplasm progression [Unknown]
  - Plasma cell myeloma [Unknown]
